FAERS Safety Report 5479328-2 (Version None)
Quarter: 2007Q4

REPORT INFORMATION
  Report Type: 
  Country: None (occurrence: None)
  Receive Date: 20071003
  Receipt Date: 20070919
  Transmission Date: 20080405
  Serious: Yes (Death)
  Sender: FDA-Public Use
  Company Number: 070911-0000836

PATIENT
  Sex: Male

DRUGS (5)
  1. NEOPROFEN [Suspect]
     Indication: PATENT DUCTUS ARTERIOSUS
     Dosage: IV
     Route: 042
  2. TOTAL PARENTERAL [Concomitant]
  3. NUTRITION [Concomitant]
  4. ANTIBIOTICS [Concomitant]
  5. LIPIDS [Concomitant]

REACTIONS (2)
  - NECROTISING COLITIS [None]
  - RENAL FAILURE [None]
